FAERS Safety Report 5080902-6 (Version None)
Quarter: 2006Q3

REPORT INFORMATION
  Report Type: 
  Country: None (occurrence: None)
  Receive Date: 20060810
  Receipt Date: 20060728
  Transmission Date: 20061208
  Serious: Yes (Hospitalization)
  Sender: FDA-Public Use
  Company Number: 2006075777

PATIENT
  Age: 65 Year
  Sex: Male
  Weight: 76 kg

DRUGS (3)
  1. SUTENT [Suspect]
     Indication: METASTATIC RENAL CELL CARCINOMA
     Dosage: 50 MG (50 MG, 1 IN 1 D), ORAL
     Route: 048
     Dates: start: 20060529, end: 20060608
  2. BISOPROLOL FUMARATE [Concomitant]
  3. TILIDINE HYDROCHLORIDE (TILIDINE HYDROCHLORIDE) [Concomitant]

REACTIONS (6)
  - ASTHENIA [None]
  - COGNITIVE DISORDER [None]
  - CONFUSIONAL STATE [None]
  - DEHYDRATION [None]
  - PYREXIA [None]
  - THROMBOCYTOPENIA [None]
